FAERS Safety Report 18094935 (Version 1)
Quarter: 2020Q3

REPORT INFORMATION
  Report Type: Spontaneous
  Country: US (occurrence: US)
  Receive Date: 20200731
  Receipt Date: 20200731
  Transmission Date: 20201103
  Serious: No
  Sender: FDA-Public Use
  Company Number: US-SA-2020SA194270

PATIENT

DRUGS (5)
  1. VITAMINS NOS [Concomitant]
     Active Substance: VITAMINS
  2. MAGNESIUM [Concomitant]
     Active Substance: MAGNESIUM
  3. TYLENOL [Concomitant]
     Active Substance: ACETAMINOPHEN
  4. AUBAGIO [Suspect]
     Active Substance: TERIFLUNOMIDE
     Indication: MULTIPLE SCLEROSIS
     Dosage: 14 MG, QD
     Route: 048
     Dates: start: 2017
  5. CALCIUM +D3 [Concomitant]
     Active Substance: CALCIUM\CHOLECALCIFEROL
     Dosage: 200?250 MG

REACTIONS (2)
  - Balance disorder [Recovering/Resolving]
  - Gait disturbance [Recovering/Resolving]
